FAERS Safety Report 9525325 (Version 2)
Quarter: 2013Q4

REPORT INFORMATION
  Report Type: Spontaneous
  Country: US (occurrence: US)
  Receive Date: 20130916
  Receipt Date: 20131202
  Transmission Date: 20140711
  Serious: Yes (Disabling, Other)
  Sender: FDA-Public Use
  Company Number: US-JNJFOC-20130903656

PATIENT
  Age: 73 Year
  Sex: Female
  Weight: 61.24 kg

DRUGS (6)
  1. DURAGESIC [Suspect]
     Indication: SPINAL OSTEOARTHRITIS
     Dosage: ONE 75 UG/HR PATCH ON ABDOMEN AND THE OTHER 75 UG/HR PATCH ON BACK
     Route: 062
  2. DURAGESIC [Suspect]
     Indication: SPINAL OSTEOARTHRITIS
     Route: 062
  3. DURAGESIC [Suspect]
     Indication: OSTEOARTHRITIS
     Dosage: ONE 75 UG/HR PATCH ON ABDOMEN AND THE OTHER 75 UG/HR PATCH ON BACK
     Route: 062
  4. DURAGESIC [Suspect]
     Indication: OSTEOARTHRITIS
     Route: 062
  5. DURAGESIC [Suspect]
     Indication: SCOLIOSIS
     Route: 062
  6. DURAGESIC [Suspect]
     Indication: SCOLIOSIS
     Dosage: ONE 75 UG/HR PATCH ON ABDOMEN AND THE OTHER 75 UG/HR PATCH ON BACK
     Route: 062

REACTIONS (8)
  - Disability [Not Recovered/Not Resolved]
  - Body height decreased [Not Recovered/Not Resolved]
  - Product adhesion issue [Unknown]
  - Drug ineffective [Recovered/Resolved]
  - Malaise [Not Recovered/Not Resolved]
  - Wrong technique in drug usage process [Unknown]
  - Drug administered at inappropriate site [Unknown]
  - Incorrect dose administered [Unknown]
